FAERS Safety Report 14166309 (Version 1)
Quarter: 2017Q4

REPORT INFORMATION
  Report Type: Spontaneous
  Country: US (occurrence: US)
  Receive Date: 20171107
  Receipt Date: 20171107
  Transmission Date: 20180321
  Serious: No
  Sender: FDA-Public Use
  Company Number: US-BIOGEN-2017BI00479915

PATIENT
  Sex: Female

DRUGS (1)
  1. AVONEX [Suspect]
     Active Substance: INTERFERON BETA-1A
     Indication: MULTIPLE SCLEROSIS
     Route: 065
     Dates: start: 20171010, end: 20171017

REACTIONS (6)
  - Bladder pain [Unknown]
  - Influenza like illness [Unknown]
  - Pollakiuria [Unknown]
  - Headache [Unknown]
  - Palpitations [Unknown]
  - Peripheral coldness [Unknown]
